FAERS Safety Report 8997527 (Version 2)
Quarter: 2013Q2

REPORT INFORMATION
  Report Type: Spontaneous
  Country: US (occurrence: US)
  Receive Date: 20130104
  Receipt Date: 20130410
  Transmission Date: 20140414
  Serious: No
  Sender: FDA-Public Use
  Company Number: US-ASTRAZENECA-2012SE95645

PATIENT
  Age: 60 Year
  Sex: Female
  Weight: 97.5 kg

DRUGS (4)
  1. NEXIUM [Suspect]
     Indication: GASTROOESOPHAGEAL REFLUX DISEASE
     Dosage: BID
     Route: 048
     Dates: end: 2008
  2. NEXIUM [Suspect]
     Indication: GASTROOESOPHAGEAL REFLUX DISEASE
     Route: 048
  3. ANTIBIOTIC [Concomitant]
     Indication: PHARYNGEAL OEDEMA
  4. VESICARE [Concomitant]
     Indication: HYPOTONIC URINARY BLADDER

REACTIONS (5)
  - Chest pain [Recovered/Resolved]
  - Cough [Unknown]
  - Gastrooesophageal reflux disease [Unknown]
  - Sensation of foreign body [Unknown]
  - Off label use [Unknown]
